FAERS Safety Report 8300226-0 (Version None)
Quarter: 2012Q2

REPORT INFORMATION
  Report Type: 
  Country: None (occurrence: None)
  Receive Date: 20120420
  Receipt Date: 20120411
  Transmission Date: 20120825
  Serious: Yes (Life-Threatening, Hospitalization)
  Sender: FDA-Public Use
  Company Number: JP-PFIZER INC-2012097337

PATIENT
  Age: 84 Year
  Sex: Male

DRUGS (7)
  1. PRIMPERAN TAB [Concomitant]
     Dosage: UNK
     Dates: start: 20120131
  2. FAMOTIDINE [Concomitant]
     Dosage: UNK
     Dates: start: 20120131
  3. ESTRACYT [Suspect]
     Indication: PROSTATE CANCER
     Dosage: 313.4 MG, 1X/DAY
     Route: 048
     Dates: start: 20120131, end: 20120306
  4. ALENDRONATE SODIUM [Concomitant]
     Dosage: 35 MG
     Dates: start: 20120131
  5. CALCITRIOL [Concomitant]
     Dosage: UNK
     Dates: start: 20120131
  6. EBRANTIL [Concomitant]
     Dosage: UNK
     Dates: start: 20120131
  7. WARFARIN [Concomitant]
     Dosage: 5 MG, 1X/DAY
     Dates: start: 20120131

REACTIONS (1)
  - PULMONARY EMBOLISM [None]
